FAERS Safety Report 6736796-3 (Version None)
Quarter: 2010Q2

REPORT INFORMATION
  Report Type: 
  Country: None (occurrence: None)
  Receive Date: 20100521
  Receipt Date: 20100513
  Transmission Date: 20101027
  Serious: Yes (Other)
  Sender: FDA-Public Use
  Company Number: US-MYLANLABS-2010S1008526

PATIENT
  Age: 16 Year
  Sex: Male

DRUGS (4)
  1. AMNESTEEM [Suspect]
     Indication: ACNE
     Route: 048
     Dates: start: 20100401, end: 20100509
  2. ZYRTEC [Concomitant]
  3. TYLENOL [Concomitant]
  4. ALBUTEROL [Concomitant]
     Route: 055

REACTIONS (3)
  - CRYING [None]
  - DEPRESSION [None]
  - SUICIDAL IDEATION [None]
